FAERS Safety Report 8193839-0 (Version None)
Quarter: 2012Q1

REPORT INFORMATION
  Report Type: 
  Country: None (occurrence: None)
  Receive Date: 20120308
  Receipt Date: 20120229
  Transmission Date: 20120608
  Serious: Yes (Hospitalization)
  Sender: FDA-Public Use
  Company Number: US-BAYER-2011-105710

PATIENT
  Age: 22 Year
  Sex: Female
  Weight: 66 kg

DRUGS (1)
  1. YAZ [Suspect]
     Dosage: UNK
     Dates: start: 20070501, end: 20090701

REACTIONS (4)
  - INJURY [None]
  - BILIARY COLIC [None]
  - CHOLELITHIASIS [None]
  - PAIN [None]
